FAERS Safety Report 10077127 (Version 1)
Quarter: 2014Q2

REPORT INFORMATION
  Report Type: Spontaneous
  Country: GB (occurrence: GB)
  Receive Date: 20140414
  Receipt Date: 20140414
  Transmission Date: 20141212
  Serious: Yes (Other)
  Sender: FDA-Public Use
  Company Number: GB-PFIZER INC-2014100683

PATIENT
  Age: 38 Year
  Sex: Male

DRUGS (4)
  1. PREGABALIN [Suspect]
     Dosage: UNK
     Dates: start: 2012
  2. AMISULPRIDE [Suspect]
     Dosage: UNK
     Dates: start: 2012
  3. CLOZARIL [Suspect]
     Indication: SCHIZOPHRENIA
     Dosage: UNK
     Route: 048
     Dates: start: 20020125
  4. CLOZARIL [Suspect]
     Dosage: UNK
     Route: 048
     Dates: start: 20140402

REACTIONS (4)
  - Neutrophil count decreased [Recovered/Resolved]
  - Nasopharyngitis [Unknown]
  - Viral infection [Unknown]
  - White blood cell count decreased [Recovered/Resolved]
